FAERS Safety Report 4499890-6 (Version None)
Quarter: 2004Q4

REPORT INFORMATION
  Report Type: 
  Country: None (occurrence: None)
  Receive Date: 20041108
  Receipt Date: 20041026
  Transmission Date: 20050328
  Serious: Yes (Life-Threatening, Disabling)
  Sender: FDA-Public Use
  Company Number: 2004241765IT

PATIENT
  Age: 61 Year
  Sex: Female

DRUGS (18)
  1. ZYVOXID (LINEZOLID) SOLUTION, STERILE [Suspect]
     Indication: BACTERIAL INFECTION
     Dosage: 600 MG, DAILY
     Dates: start: 20041016, end: 20041021
  2. INDERAL [Concomitant]
  3. HUMATIN [Concomitant]
  4. LAEVOLAC [Concomitant]
  5. PANCREAX [Concomitant]
  6. PANTORC (PANTOPRAZOLE SODIUM) [Concomitant]
  7. SUCRAMAL [Concomitant]
  8. MOTILIUM [Suspect]
  9. DEURSIL [Concomitant]
  10. KANRENOL [Concomitant]
  11. MIDODRINE HCL [Concomitant]
  12. MAG 2 (MAGNESIUM PIDOLATE) [Concomitant]
  13. K-FLEBO (ASPARTATE POTASSIUM) [Concomitant]
  14. LASIX [Concomitant]
  15. HUMAN ALBUMIN ^BEHRING^ [Concomitant]
  16. IDROPLURIVIT (VITAMINS NOS) [Concomitant]
  17. ERYTHROPOIETIN (ERYTHROPOIETIN) [Concomitant]
  18. VITAMINS NOS (VITAMINS NOS) [Concomitant]

REACTIONS (3)
  - DISTURBANCE IN ATTENTION [None]
  - HEPATIC ENCEPHALOPATHY [None]
  - SOMNOLENCE [None]
